FAERS Safety Report 8153391-2 (Version None)
Quarter: 2012Q1

REPORT INFORMATION
  Report Type: 
  Country: None (occurrence: None)
  Receive Date: 20120221
  Receipt Date: 20120220
  Transmission Date: 20120608
  Serious: Yes (Other)
  Sender: FDA-Public Use
  Company Number: FR-ROCHE-1028458

PATIENT
  Sex: Female

DRUGS (8)
  1. KEPPRA [Concomitant]
  2. TEGRETOL [Suspect]
     Indication: PRODUCT USED FOR UNKNOWN INDICATION
     Route: 048
     Dates: start: 20111030, end: 20111206
  3. FLAGYL [Suspect]
     Indication: PRODUCT USED FOR UNKNOWN INDICATION
  4. ROCEPHIN [Suspect]
     Indication: PRODUCT USED FOR UNKNOWN INDICATION
     Route: 042
  5. LOXEN [Concomitant]
  6. PENTOTHAL [Suspect]
     Indication: PRODUCT USED FOR UNKNOWN INDICATION
  7. PHENOBARBITAL TAB [Suspect]
     Indication: PRODUCT USED FOR UNKNOWN INDICATION
     Route: 048
     Dates: start: 20111204, end: 20111206
  8. GENTAMICIN [Concomitant]

REACTIONS (2)
  - DERMATITIS EXFOLIATIVE [None]
  - TOXIC SKIN ERUPTION [None]
